FAERS Safety Report 4862752-6 (Version None)
Quarter: 2005Q4

REPORT INFORMATION
  Report Type: 
  Country: None (occurrence: None)
  Receive Date: 20051221
  Receipt Date: 20051209
  Transmission Date: 20060501
  Serious: Yes (Other)
  Sender: FDA-Public Use
  Company Number: CA-BRISTOL-MYERS SQUIBB COMPANY-13219928

PATIENT
  Age: 76 Year
  Sex: Female

DRUGS (14)
  1. TEQUIN [Suspect]
     Route: 048
  2. CIPRO [Concomitant]
  3. CLONIDINE [Concomitant]
  4. GLYBURIDE [Concomitant]
  5. LASIX [Concomitant]
  6. LOVENOX [Concomitant]
  7. METFORMIN HCL [Concomitant]
  8. METOPROLOL [Concomitant]
  9. NITROGLYCERIN [Concomitant]
     Route: 062
  10. NORVASC [Concomitant]
  11. PLAVIX [Concomitant]
  12. SYNTHROID [Concomitant]
  13. TYLENOL [Concomitant]
  14. ZOCOR [Concomitant]

REACTIONS (1)
  - HYPOGLYCAEMIA [None]
